FAERS Safety Report 7984024-3 (Version None)
Quarter: 2011Q4

REPORT INFORMATION
  Report Type: 
  Country: None (occurrence: None)
  Receive Date: 20111216
  Receipt Date: 20111213
  Transmission Date: 20120403
  Serious: Yes (Other)
  Sender: FDA-Public Use
  Company Number: ZA-PFIZER INC-2011292142

PATIENT
  Age: 56 Year
  Sex: Male

DRUGS (1)
  1. VARENICLINE TARTRATE [Suspect]
     Indication: SMOKING CESSATION THERAPY
     Dosage: 1 MG, 2X/DAY
     Route: 048
     Dates: start: 20111114, end: 20110101

REACTIONS (4)
  - AGITATION [None]
  - SPLEEN DISORDER [None]
  - DEPRESSION [None]
  - PANCREATIC DISORDER [None]
